FAERS Safety Report 9796015 (Version 2)
Quarter: 2014Q1

REPORT INFORMATION
  Report Type: Spontaneous
  Country: US (occurrence: US)
  Receive Date: 20140103
  Receipt Date: 20140103
  Transmission Date: 20141002
  Serious: No
  Sender: FDA-Public Use
  Company Number: US-GILEAD-2010-0034085

PATIENT
  Age: 34 Year
  Sex: Female

DRUGS (4)
  1. CAYSTON [Suspect]
     Indication: CYSTIC FIBROSIS
     Dates: start: 201004
  2. PULMOZYME [Concomitant]
  3. XOPENEX [Concomitant]
  4. ATROVENT [Concomitant]

REACTIONS (1)
  - Oral candidiasis [Unknown]
